FAERS Safety Report 7994565-0 (Version None)
Quarter: 2011Q4

REPORT INFORMATION
  Report Type: 
  Country: None (occurrence: None)
  Receive Date: 20111220
  Receipt Date: 20111207
  Transmission Date: 20120403
  Serious: Yes (Other)
  Sender: FDA-Public Use
  Company Number: JP-PFIZER INC-2011307914

PATIENT
  Age: 69 Year
  Sex: Male
  Weight: 67 kg

DRUGS (11)
  1. REMIFENTANIL HYDROCHLORIDE [Suspect]
     Indication: GENERAL ANAESTHESIA
     Route: 008
  2. DOPAMINE HCL [Suspect]
     Indication: ANAESTHESIA
  3. METHYLPREDNISOLONE SODIUM SUCCINATE [Suspect]
     Indication: PROPHYLAXIS
     Route: 042
  4. MIDAZOLAM [Suspect]
     Indication: GENERAL ANAESTHESIA
     Route: 008
  5. ULINASTATIN [Suspect]
     Indication: PROPHYLAXIS
     Route: 042
  6. TRANEXAMIC ACID [Suspect]
     Indication: PROPHYLAXIS
     Route: 042
  7. HEPARIN [Suspect]
     Indication: PROPHYLAXIS
     Route: 042
  8. CEFAZOLIN SODIUM [Suspect]
     Indication: PROPHYLAXIS
     Route: 042
  9. ROCURONIUM BROMIDE [Suspect]
     Indication: GENERAL ANAESTHESIA
     Route: 008
  10. PROPOFOL [Suspect]
     Indication: ANAESTHESIA
  11. KETAMINE HCL [Suspect]
     Indication: GENERAL ANAESTHESIA
     Dosage: UNK
     Route: 008
     Dates: start: 20110301

REACTIONS (7)
  - PULSELESS ELECTRICAL ACTIVITY [None]
  - ANAPHYLACTIC SHOCK [None]
  - CORONARY ARTERY BYPASS [None]
  - PERICARDIAL EFFUSION [None]
  - CARDIAC ARREST [None]
  - INTRA-ABDOMINAL HAEMORRHAGE [None]
  - LIVER INJURY [None]
